FAERS Safety Report 6701694-8 (Version None)
Quarter: 2010Q2

REPORT INFORMATION
  Report Type: 
  Country: None (occurrence: None)
  Receive Date: 20100429
  Receipt Date: 20100329
  Transmission Date: 20101027
  Serious: No
  Sender: FDA-Public Use
  Company Number: US-BAYER-201013707BCC

PATIENT
  Age: 49 Year
  Sex: Male
  Weight: 86 kg

DRUGS (1)
  1. ALEVE (CAPLET) [Suspect]
     Indication: ARTHRALGIA
     Dosage: TOTAL DAILY DOSE: 220 MG  UNIT DOSE: 220 MG
     Route: 048
     Dates: start: 20100325, end: 20100325

REACTIONS (8)
  - ABDOMINAL PAIN UPPER [None]
  - DISCOMFORT [None]
  - DIZZINESS [None]
  - EATING DISORDER [None]
  - FLATULENCE [None]
  - HEADACHE [None]
  - HUNGER [None]
  - IRRITABILITY [None]
